FAERS Safety Report 5188252-4 (Version None)
Quarter: 2006Q4

REPORT INFORMATION
  Report Type: 
  Country: None (occurrence: None)
  Receive Date: 20061221
  Receipt Date: 20061219
  Transmission Date: 20070319
  Serious: Yes (Other)
  Sender: FDA-Public Use
  Company Number: BR-GLAXOSMITHKLINE-A0632369A

PATIENT
  Age: 19 Year
  Sex: Female

DRUGS (3)
  1. AMOXIL [Suspect]
     Indication: SUICIDE ATTEMPT
     Dosage: 10000MG SINGLE DOSE
     Route: 048
  2. METRONIDAZOLE [Suspect]
     Indication: SUICIDE ATTEMPT
     Dosage: 5000MG SINGLE DOSE
     Route: 048
  3. PREDNISONE TAB [Suspect]
     Indication: SUICIDE ATTEMPT
     Dosage: 200MG SINGLE DOSE
     Route: 048

REACTIONS (1)
  - SUICIDE ATTEMPT [None]
